FAERS Safety Report 13490383 (Version 2)
Quarter: 2017Q2

REPORT INFORMATION
  Report Type: Spontaneous
  Country: US (occurrence: US)
  Receive Date: 20170427
  Receipt Date: 20170427
  Transmission Date: 20170830
  Serious: Yes (Other)
  Sender: FDA-Public Use
  Company Number: US-BAYER-2017-075483

PATIENT
  Age: 73 Year
  Sex: Female
  Weight: 87 kg

DRUGS (2)
  1. MIRALAX [Suspect]
     Active Substance: POLYETHYLENE GLYCOL 3350
     Indication: INTESTINAL OBSTRUCTION
     Dosage: UNK UNK, BID
     Route: 048
     Dates: start: 201703, end: 201704
  2. MIRAFIBER CAPLETS [Suspect]
     Active Substance: CITRIC ACID MONOHYDRATE\METHYLCELLULOSE
     Indication: INTESTINAL OBSTRUCTION
     Dosage: UNK UNK, BID
     Route: 048
     Dates: start: 201703

REACTIONS (5)
  - Intestinal obstruction [Unknown]
  - Product use issue [Unknown]
  - Retching [Recovered/Resolved]
  - Wrong drug administered [Unknown]
  - Product use in unapproved indication [Unknown]

NARRATIVE: CASE EVENT DATE: 201703
